FAERS Safety Report 6744483-0 (Version None)
Quarter: 2010Q2

REPORT INFORMATION
  Report Type: 
  Country: None (occurrence: None)
  Receive Date: 20100527
  Receipt Date: 20100518
  Transmission Date: 20101027
  Serious: Yes (Hospitalization, Other)
  Sender: FDA-Public Use
  Company Number: JP-PFIZER INC-2009219214

PATIENT
  Age: 58 Year
  Sex: Female
  Weight: 49.1 kg

DRUGS (3)
  1. SUNITINIB MALATE [Suspect]
     Indication: RENAL CELL CARCINOMA
     Dosage: 50 MG, 1X/DAY
     Route: 048
     Dates: start: 20090420, end: 20090810
  2. MAGNESIUM OXIDE [Concomitant]
     Dosage: UNK
     Route: 048
     Dates: start: 20090416
  3. KERATINAMIN [Concomitant]
     Dosage: UNK
     Route: 062
     Dates: start: 20090416

REACTIONS (7)
  - ANAEMIA [None]
  - DECREASED APPETITE [None]
  - HYPOTHYROIDISM [None]
  - LIPASE INCREASED [None]
  - PLATELET COUNT DECREASED [None]
  - TUMOUR HAEMORRHAGE [None]
  - WHITE BLOOD CELL COUNT DECREASED [None]
